FAERS Safety Report 6349883-9 (Version None)
Quarter: 2009Q3

REPORT INFORMATION
  Report Type: 
  Country: None (occurrence: None)
  Receive Date: 20090911
  Receipt Date: 20090828
  Transmission Date: 20100115
  Serious: Yes (Hospitalization, Other)
  Sender: FDA-Public Use
  Company Number: US-ELI_LILLY_AND_COMPANY-US200909000317

PATIENT
  Sex: Female

DRUGS (3)
  1. FORTEO [Suspect]
     Indication: OSTEOPOROSIS
     Dosage: UNK, UNKNOWN
     Dates: start: 20070101
  2. FORTEO [Suspect]
     Dosage: UNK, UNK
  3. CALCIUM [Concomitant]
     Dosage: UNK, 3/D

REACTIONS (2)
  - FALL [None]
  - HIP FRACTURE [None]
